FAERS Safety Report 10226742 (Version 3)
Quarter: 2014Q3

REPORT INFORMATION
  Report Type: Spontaneous
  Country: FR (occurrence: FR)
  Receive Date: 20140610
  Receipt Date: 20140711
  Transmission Date: 20150326
  Serious: Yes (Other)
  Sender: FDA-Public Use
  Company Number: PHHY2014FR032500

PATIENT
  Age: 84 Year
  Sex: Female
  Weight: 52 kg

DRUGS (5)
  1. FLECAINE [Concomitant]
     Active Substance: FLECAINIDE
  2. CIBACENE [Concomitant]
  3. ATORVASTATIN SANDOZ [Suspect]
     Active Substance: ATORVASTATIN
     Dosage: 1 DF, QD
     Route: 048
     Dates: start: 201210
  4. LODOZ [Concomitant]
     Active Substance: BISOPROLOL FUMARATE\HYDROCHLOROTHIAZIDE
     Route: 065
  5. MODURETIC 5-50 [Concomitant]
     Active Substance: AMILORIDE HYDROCHLORIDE\HYDROCHLOROTHIAZIDE
     Route: 065

REACTIONS (2)
  - Anorectal discomfort [Recovering/Resolving]
  - Subcutaneous abscess [Recovering/Resolving]

NARRATIVE: CASE EVENT DATE: 201403
